FAERS Safety Report 9091021 (Version 1)
Quarter: 2013Q1

REPORT INFORMATION
  Report Type: Spontaneous
  Country: JP (occurrence: JP)
  Receive Date: 20130131
  Receipt Date: 20130131
  Transmission Date: 20140127
  Serious: Yes (Hospitalization)
  Sender: FDA-Public Use
  Company Number: JP-PFIZER INC-2012330423

PATIENT
  Age: 81 Year
  Sex: Female

DRUGS (1)
  1. ZITHROMAC [Suspect]
     Dosage: 500 MG, DAILY
     Route: 048
     Dates: start: 20121225, end: 20121226

REACTIONS (2)
  - Fracture [Unknown]
  - Myalgia [Unknown]
